FAERS Safety Report 19993910 (Version 1)
Quarter: 2021Q4

REPORT INFORMATION
  Report Type: Spontaneous
  Country: JP (occurrence: JP)
  Receive Date: 20211025
  Receipt Date: 20211025
  Transmission Date: 20220304
  Serious: Yes (Hospitalization)
  Sender: FDA-Public Use
  Company Number: JP-DSJP-DSJ-2021-134594

PATIENT
  Age: 75 Year
  Sex: Female

DRUGS (4)
  1. OLMESARTAN MEDOXOMIL [Suspect]
     Active Substance: OLMESARTAN MEDOXOMIL
     Indication: Hypertension
     Dosage: 10MG/DAY
     Route: 048
  2. METFORMIN HYDROCHLORIDE [Concomitant]
     Active Substance: METFORMIN HYDROCHLORIDE
     Dosage: 500MG/DAY
     Route: 048
  3. TENELIGLIPTIN HYDROBROMIDE HYDRATE [Concomitant]
     Active Substance: TENELIGLIPTIN HYDROBROMIDE HYDRATE
     Dosage: 40MG/DAY
     Route: 048
  4. ICOSAPENT ETHYL [Concomitant]
     Active Substance: ICOSAPENT ETHYL
     Dosage: 900MG/DAY
     Route: 048

REACTIONS (1)
  - Cerebral infarction [Recovering/Resolving]
